FAERS Safety Report 6713510-9 (Version None)
Quarter: 2010Q2

REPORT INFORMATION
  Report Type: 
  Country: None (occurrence: None)
  Receive Date: 20100506
  Receipt Date: 20100426
  Transmission Date: 20101027
  Serious: Yes (Hospitalization, Other)
  Sender: FDA-Public Use
  Company Number: BR-SANOFI-AVENTIS-2010SA022549

PATIENT
  Sex: Female

DRUGS (3)
  1. LANTUS [Suspect]
     Indication: TYPE 1 DIABETES MELLITUS
     Route: 058
  2. INSULIN PEN NOS [Suspect]
  3. NOVORAPID [Suspect]
     Route: 058

REACTIONS (4)
  - ABDOMINAL PAIN [None]
  - DEHYDRATION [None]
  - PANCREATITIS [None]
  - VOMITING [None]
